FAERS Safety Report 5167404-3 (Version None)
Quarter: 2006Q4

REPORT INFORMATION
  Report Type: 
  Country: None (occurrence: None)
  Receive Date: 20061130
  Receipt Date: 20061117
  Transmission Date: 20070319
  Serious: Yes (Hospitalization)
  Sender: FDA-Public Use
  Company Number: 2006095333

PATIENT
  Age: 73 Year
  Sex: Female
  Weight: 54 kg

DRUGS (5)
  1. SUTENT [Suspect]
     Indication: GASTROINTESTINAL STROMAL TUMOUR
     Dosage: 50 MG (50 MG,QD: 28 DAYS 14 DAYS OFF), ORAL
     Route: 048
     Dates: start: 20060414
  2. OMEPRAZOLE [Concomitant]
  3. HYDROCHLOROTHIAZIDE [Concomitant]
  4. LISIHEXAL (LISINOPRIL) [Concomitant]
  5. ACTRAPHANE HM (INSULIN HUMAN INJECTION, ISOPHANE) [Concomitant]

REACTIONS (6)
  - ABDOMINAL PAIN [None]
  - FATIGUE [None]
  - GASTRITIS [None]
  - GENERAL PHYSICAL HEALTH DETERIORATION [None]
  - ORAL INTAKE REDUCED [None]
  - WEIGHT DECREASED [None]
